FAERS Safety Report 4296739-1 (Version None)
Quarter: 2004Q1

REPORT INFORMATION
  Report Type: 
  Country: None (occurrence: None)
  Receive Date: 20040126
  Receipt Date: 20030722
  Transmission Date: 20041129
  Serious: No
  Sender: FDA-Public Use
  Company Number: USA030742205

PATIENT
  Age: 11 Year
  Sex: Male
  Weight: 81 kg

DRUGS (2)
  1. STRATTERA [Suspect]
     Indication: ATTENTION DEFICIT/HYPERACTIVITY DISORDER
     Dosage: 60 MG/DAY
     Dates: start: 20030714
  2. ADDERALL [Concomitant]

REACTIONS (2)
  - HEART RATE INCREASED [None]
  - PULSE PRESSURE INCREASED [None]
